FAERS Safety Report 4691152-7 (Version None)
Quarter: 2005Q2

REPORT INFORMATION
  Report Type: 
  Country: None (occurrence: None)
  Receive Date: 20050610
  Receipt Date: 20050531
  Transmission Date: 20051028
  Serious: Yes (Other)
  Sender: FDA-Public Use
  Company Number: 1515-096

PATIENT
  Age: 43 Year
  Sex: Male

DRUGS (9)
  1. VENOFER [Suspect]
     Indication: IRON DEFICIENCY ANAEMIA
     Dosage: 100MG/100ML NS IV
     Route: 042
     Dates: start: 20050328, end: 20050516
  2. DARBEPOETIN ALPHA [Concomitant]
  3. PARACALCITROL [Concomitant]
  4. SODIUM HEPARIN [Concomitant]
  5. ALUMINUM HYDROXIDE [Concomitant]
  6. SEVELAMER [Concomitant]
  7. ASPIRIN [Concomitant]
  8. FOLIC ACID [Concomitant]
  9. VITAMIN COMPLEX [Concomitant]

REACTIONS (5)
  - CHEST PAIN [None]
  - DISORIENTATION [None]
  - MYOCLONUS [None]
  - PYREXIA [None]
  - TREMOR [None]
